FAERS Safety Report 6924219-0 (Version None)
Quarter: 2010Q3

REPORT INFORMATION
  Report Type: 
  Country: None (occurrence: None)
  Receive Date: 20100813
  Receipt Date: 20100805
  Transmission Date: 20110219
  Serious: Yes (Hospitalization)
  Sender: FDA-Public Use
  Company Number: US-ABBOTT-10P-163-0663441-00

PATIENT
  Age: 51 Year
  Sex: Male

DRUGS (2)
  1. ADALIMUMAB [Suspect]
     Indication: SERONEGATIVE ARTHRITIS
  2. METHOTREXATE [Concomitant]
     Indication: SERONEGATIVE ARTHRITIS

REACTIONS (1)
  - DERMATOMYOSITIS [None]
